FAERS Safety Report 4855435-X (Version None)
Quarter: 2005Q4

REPORT INFORMATION
  Report Type: 
  Country: None (occurrence: None)
  Receive Date: 20051125
  Receipt Date: 20050224
  Transmission Date: 20060501
  Serious: Yes (Other)
  Sender: FDA-Public Use
  Company Number: 800291

PATIENT
  Age: 82 Year
  Sex: Male

DRUGS (12)
  1. DIANEAL [Suspect]
     Indication: PERITONEAL DIALYSIS
     Dosage: 12 L;EVERY DAY;IP
  2. ATORVASTATIN [Concomitant]
  3. REGLAN [Concomitant]
  4. K-DUR 10 [Concomitant]
  5. BENZONATATE [Concomitant]
  6. NOVOLIN 70/30 [Concomitant]
  7. INSULIN [Concomitant]
  8. NEPHROCAP [Concomitant]
  9. ADVAIR DISKUS 250/50 [Concomitant]
  10. COLACE [Concomitant]
  11. LACTIC ACID [Concomitant]
  12. BACTROBAN [Concomitant]

REACTIONS (2)
  - MEDICAL DEVICE COMPLICATION [None]
  - PERITONITIS [None]
